FAERS Safety Report 15503817 (Version 1)
Quarter: 2018Q4

REPORT INFORMATION
  Report Type: Spontaneous
  Country: US (occurrence: US)
  Receive Date: 20181009
  Receipt Date: 20181009
  Transmission Date: 20190205
  Serious: Yes (Life-Threatening)
  Sender: FDA-Public Use
  Company Number: None

PATIENT
  Age: 47 Year
  Sex: Female
  Weight: 33.11 kg

DRUGS (3)
  1. VITAMIN D [Concomitant]
     Active Substance: CHOLECALCIFEROL
  2. TORADOL [Suspect]
     Active Substance: KETOROLAC TROMETHAMINE
     Indication: PAIN MANAGEMENT
     Route: 042
     Dates: start: 20180712, end: 20180714
  3. DILANTIN [Concomitant]
     Active Substance: PHENYTOIN

REACTIONS (3)
  - Intestinal haemorrhage [None]
  - Transient ischaemic attack [None]
  - Blood glucose decreased [None]

NARRATIVE: CASE EVENT DATE: 20180712
